FAERS Safety Report 8285533-2 (Version None)
Quarter: 2012Q2

REPORT INFORMATION
  Report Type: 
  Country: None (occurrence: None)
  Receive Date: 20120413
  Receipt Date: 20110314
  Transmission Date: 20120825
  Serious: No
  Sender: FDA-Public Use
  Company Number: US-ASTRAZENECA-2011SE14027

PATIENT
  Age: 62 Year
  Sex: Male

DRUGS (2)
  1. NEXIUM [Suspect]
     Indication: GASTROOESOPHAGEAL REFLUX DISEASE
     Route: 048
     Dates: end: 20110201
  2. NEXIUM [Suspect]
     Route: 048
     Dates: start: 20110201

REACTIONS (3)
  - NAIL INJURY [None]
  - DYSPEPSIA [None]
  - HIATUS HERNIA [None]
